FAERS Safety Report 8748742 (Version 2)
Quarter: 2012Q4

REPORT INFORMATION
  Report Type: 
  Country: FR (occurrence: FR)
  Receive Date: 20120827
  Receipt Date: 20121001
  Transmission Date: 20130627
  Serious: Yes (Other)
  Sender: FDA-Public Use
  Company Number: FR-VERTEX PHARMACEUTICAL INC.-2012-020045

PATIENT
  Age: 62 Year
  Sex: Male
  Weight: 71 kg

DRUGS (9)
  1. VX-950 [Suspect]
     Indication: HEPATITIS C
     Dosage: 750 mg, tid
     Route: 048
     Dates: start: 20110609, end: 20110829
  2. PEGASYS [Suspect]
     Indication: HEPATITIS C
     Dosage: 180 ?g, qw
     Dates: start: 20110609, end: 20120510
  3. DEXERYL [Concomitant]
     Indication: PRURITUS
     Dosage: 1 DF, prn
     Route: 065
     Dates: start: 20120629
  4. COPEGUS [Concomitant]
     Indication: HEPATITIS C
     Dates: start: 20110609, end: 20120510
  5. ZOLPIDEM [Concomitant]
     Indication: INSOMNIA
     Dosage: 10 mg, qd
     Dates: start: 20110628
  6. PARACETAMOL [Concomitant]
     Indication: INFLUENZA
     Dosage: 500 mg, prn
     Dates: start: 20120628
  7. XYZALL [Concomitant]
     Indication: PRURITUS
     Dates: start: 20110628, end: 20110801
  8. OGAST [Concomitant]
     Indication: DYSPEPSIA
     Dosage: 15 mg, qw
     Dates: start: 20110706, end: 20110801
  9. ATARAX [Concomitant]
     Indication: PRURITUS
     Dosage: 25 mg, qd
     Dates: start: 20110801

REACTIONS (1)
  - Neutropenia [Recovered/Resolved]
